FAERS Safety Report 10933527 (Version 5)
Quarter: 2015Q3

REPORT INFORMATION
  Report Type: Spontaneous
  Country: US (occurrence: US)
  Receive Date: 20150320
  Receipt Date: 20150831
  Transmission Date: 20151125
  Serious: Yes (Death, Hospitalization, Other)
  Sender: FDA-Public Use
  Company Number: US-GLAXOSMITHKLINE-US2015GSK037366

PATIENT
  Age: 42 Year
  Sex: Female
  Weight: 65 kg

DRUGS (7)
  1. DOXEPIN [Concomitant]
     Active Substance: DOXEPIN
  2. PROCHLORPERAZINE. [Concomitant]
     Active Substance: PROCHLORPERAZINE
  3. PROVENTIL [Concomitant]
     Active Substance: ALBUTEROL
  4. VOTRIENT [Suspect]
     Active Substance: PAZOPANIB HYDROCHLORIDE
     Indication: RENAL CANCER
     Dosage: 800 MG, QD
     Route: 065
     Dates: start: 20150120, end: 20150604
  5. LORAZEPAM. [Concomitant]
     Active Substance: LORAZEPAM
  6. OXYCODONE [Concomitant]
     Active Substance: OXYCODONE
  7. ONDANSETRON [Concomitant]
     Active Substance: ONDANSETRON

REACTIONS (11)
  - Metastasis [Not Recovered/Not Resolved]
  - Renal cell carcinoma [Fatal]
  - Nausea [Not Recovered/Not Resolved]
  - Drug dose omission [Unknown]
  - Hot flush [Unknown]
  - Vomiting [Recovered/Resolved]
  - Abdominal pain [Recovered/Resolved]
  - Alopecia [Unknown]
  - Drug ineffective [Unknown]
  - Rash erythematous [Unknown]
  - Memory impairment [Unknown]

NARRATIVE: CASE EVENT DATE: 201501
